FAERS Safety Report 9886913 (Version 2)
Quarter: 2014Q1

REPORT INFORMATION
  Report Type: Report from Study
  Country: US (occurrence: US)
  Receive Date: 20140210
  Receipt Date: 20140217
  Transmission Date: 20141002
  Serious: Yes (Hospitalization, Other)
  Sender: FDA-Public Use
  Company Number: US-ROCHE-1347544

PATIENT
  Age: 79 Year
  Sex: Male

DRUGS (9)
  1. LUCENTIS [Suspect]
     Indication: MACULAR DEGENERATION
     Dosage: 6 SHOTS RIGHT EYE, 3 SHOTS LEFT EYE
     Route: 065
     Dates: start: 201210, end: 201311
  2. JANUVIA [Concomitant]
     Indication: DIABETES MELLITUS
     Route: 065
  3. GLUCOTROL [Concomitant]
     Route: 065
  4. NORVASC [Concomitant]
     Route: 065
  5. COUMADIN [Concomitant]
     Indication: ANTICOAGULANT THERAPY
     Route: 065
  6. METFORMIN [Concomitant]
     Route: 065
  7. GEMFIBROZIL [Concomitant]
     Route: 065
  8. LISINOPRIL [Concomitant]
     Route: 065
  9. OMEPRAZOLE [Concomitant]
     Indication: GASTROOESOPHAGEAL REFLUX DISEASE
     Dosage: BEDTIME
     Route: 065

REACTIONS (4)
  - Cerebrovascular accident [Recovering/Resolving]
  - Blindness unilateral [Unknown]
  - Drug ineffective [Unknown]
  - Eye disorder [Unknown]
